FAERS Safety Report 8540607-3 (Version None)
Quarter: 2012Q3

REPORT INFORMATION
  Report Type: 
  Country: None (occurrence: None)
  Receive Date: 20120726
  Receipt Date: 20120720
  Transmission Date: 20120928
  Serious: Yes (Hospitalization, Disabling)
  Sender: FDA-Public Use
  Company Number: US-009507513-1202USA02805

PATIENT

DRUGS (3)
  1. FOSAMAX [Suspect]
     Indication: OSTEOPOROSIS
     Dosage: 70 MG, UNK
     Route: 048
     Dates: start: 20030102, end: 20060204
  2. FOSAMAX [Suspect]
     Indication: OSTEOPENIA
  3. FOSAMAX PLUS D [Suspect]
     Dosage: 70 MG, UNK
     Route: 048
     Dates: start: 20070208

REACTIONS (11)
  - LOW TURNOVER OSTEOPATHY [None]
  - LUMBAR RADICULOPATHY [None]
  - SCOLIOSIS [None]
  - INTERVERTEBRAL DISC PROTRUSION [None]
  - ABDOMINAL DISCOMFORT [None]
  - FEMUR FRACTURE [None]
  - LIGAMENT SPRAIN [None]
  - RADICULITIS LUMBOSACRAL [None]
  - INTERVERTEBRAL DISC SPACE NARROWING [None]
  - UTERINE POLYP [None]
  - TOOTH DISORDER [None]
